FAERS Safety Report 8282660-0 (Version None)
Quarter: 2012Q2

REPORT INFORMATION
  Report Type: 
  Country: None (occurrence: None)
  Receive Date: 20120410
  Receipt Date: 20120326
  Transmission Date: 20120825
  Serious: Yes (Hospitalization, Other)
  Sender: FDA-Public Use
  Company Number: 2012P1010861

PATIENT
  Age: 47 Year
  Sex: Male
  Weight: 117.9352 kg

DRUGS (4)
  1. ASPIRIN [Concomitant]
  2. CRESTOR [Concomitant]
  3. FINASTERIDE [Concomitant]
  4. ACETAZOLAMIDE [Suspect]
     Indication: MOUNTAIN SICKNESS ACUTE
     Dosage: 125 MG, BID, PO
     Route: 048
     Dates: start: 20120217, end: 20120218

REACTIONS (1)
  - URINARY BLADDER HAEMORRHAGE [None]
